FAERS Safety Report 6417790-9 (Version None)
Quarter: 2009Q4

REPORT INFORMATION
  Report Type: 
  Country: None (occurrence: None)
  Receive Date: 20091028
  Receipt Date: 20091021
  Transmission Date: 20100525
  Serious: Yes (Other)
  Sender: FDA-Public Use
  Company Number: BR-JNJFOC-20091006830

PATIENT
  Age: 7 Year

DRUGS (1)
  1. CHILDREN'S IBUPROFEN [Suspect]
     Indication: PYREXIA
     Route: 048

REACTIONS (2)
  - ACCIDENTAL OVERDOSE [None]
  - NEUTROPHIL PELGER-HUET ANOMALY PRESENT [None]
